FAERS Safety Report 4634286-5 (Version None)
Quarter: 2005Q2

REPORT INFORMATION
  Report Type: 
  Country: None (occurrence: None)
  Receive Date: 20050413
  Receipt Date: 20050316
  Transmission Date: 20051028
  Serious: Yes (Hospitalization)
  Sender: FDA-Public Use
  Company Number: PHBS2005AT03993

PATIENT
  Age: 78 Year
  Sex: Female

DRUGS (9)
  1. SANDIMMUNE [Suspect]
     Indication: NEPHROTIC SYNDROME
     Dosage: 100 - 0 - 75 MG/DAY
     Route: 065
     Dates: start: 20031101, end: 20050301
  2. EUTHYROX [Concomitant]
     Dosage: 50 MG, QD
  3. UROSIN [Concomitant]
     Dosage: 300 MG, QD
  4. GLADEM [Concomitant]
     Dosage: 50 MG, QD
  5. AQUAPHORIL [Concomitant]
     Dosage: 1 DF, QD
  6. LASIX [Concomitant]
     Dosage: 80 MG, QD
  7. URBASON [Concomitant]
     Dosage: 10 MG, QD
  8. INSULIN MIXTARD [Concomitant]
     Dosage: 16 IU, QD
  9. ACEMIN [Concomitant]
     Dosage: 15 MG/DAY

REACTIONS (2)
  - ENCEPHALOPATHY [None]
  - HYPERTENSIVE CRISIS [None]
